FAERS Safety Report 21303211 (Version 3)
Quarter: 2022Q4

REPORT INFORMATION
  Report Type: Other
  Country: US (occurrence: None)
  Receive Date: 20220907
  Receipt Date: 20221013
  Transmission Date: 20230112
  Serious: Yes (Other)
  Sender: FDA-Public Use
  Company Number: US-ROCHE-3172174

PATIENT
  Sex: Female
  Weight: 73.003 kg

DRUGS (19)
  1. OCREVUS [Suspect]
     Active Substance: OCRELIZUMAB
     Indication: Relapsing-remitting multiple sclerosis
     Route: 042
     Dates: start: 202103
  2. OCREVUS [Suspect]
     Active Substance: OCRELIZUMAB
     Route: 042
  3. LIPITOR [Concomitant]
     Active Substance: ATORVASTATIN CALCIUM
     Dosage: DOSE: 1 TAB
     Route: 048
  4. LIORESAL [Concomitant]
     Active Substance: BACLOFEN
     Route: 048
  5. SINEQUAN [Concomitant]
     Active Substance: DOXEPIN HYDROCHLORIDE
     Route: 048
  6. FERROUS GLUCONATE [Concomitant]
     Active Substance: FERROUS GLUCONATE
     Route: 048
  7. NEURONTIN [Concomitant]
     Active Substance: GABAPENTIN
     Route: 048
  8. ADVIL [Concomitant]
     Active Substance: IBUPROFEN
     Route: 048
  9. MOTRIN [Concomitant]
     Active Substance: IBUPROFEN
     Route: 048
  10. LAMICTAL [Concomitant]
     Active Substance: LAMOTRIGINE
     Route: 048
  11. SYNTHROID [Concomitant]
     Active Substance: LEVOTHYROXINE SODIUM
     Dosage: DOSE: 1 TAB
     Route: 048
  12. LEVOTHROID [Concomitant]
     Active Substance: LEVOTHYROXINE SODIUM
     Dosage: DOSE: 1 TAB
     Route: 048
  13. PERCOCET [Concomitant]
     Active Substance: ACETAMINOPHEN\OXYCODONE HYDROCHLORIDE
     Dosage: DOSE: 1 TAB
  14. PROTONIX DR [Concomitant]
  15. PAXIL [Concomitant]
     Active Substance: PAROXETINE HYDROCHLORIDE
  16. PRINIVIL [Concomitant]
     Active Substance: LISINOPRIL
     Route: 048
  17. ZESTRIL [Concomitant]
     Active Substance: LISINOPRIL
     Dosage: DOSE: 0.5 TABS
     Route: 048
  18. TROKENDI XR [Concomitant]
     Active Substance: TOPIRAMATE
     Route: 048
  19. GEODON [Concomitant]
     Active Substance: ZIPRASIDONE HYDROCHLORIDE\ZIPRASIDONE MESYLATE

REACTIONS (27)
  - Neurogenic bladder [Unknown]
  - Hemiparesis [Unknown]
  - Optic neuritis [Unknown]
  - Syncope [Unknown]
  - Hypotension [Unknown]
  - Hypertension [Unknown]
  - Hypothyroidism [Unknown]
  - Obesity [Unknown]
  - Vitamin D deficiency [Unknown]
  - Acute sinusitis [Unknown]
  - Urinary incontinence [Unknown]
  - Mixed anxiety and depressive disorder [Unknown]
  - Back pain [Unknown]
  - Arthritis [Unknown]
  - Neuralgia [Unknown]
  - Confusional state [Unknown]
  - Abnormal sleep-related event [Unknown]
  - Fatigue [Unknown]
  - Movement disorder [Unknown]
  - Fall [Unknown]
  - Dysaesthesia [Unknown]
  - Chronic fatigue syndrome [Unknown]
  - Balance disorder [Unknown]
  - Lymphoedema [Unknown]
  - Hypoaesthesia [Recovering/Resolving]
  - Sensory loss [Unknown]
  - Sciatica [Unknown]
